FAERS Safety Report 7740266-3 (Version None)
Quarter: 2011Q3

REPORT INFORMATION
  Report Type: 
  Country: None (occurrence: None)
  Receive Date: 20110909
  Receipt Date: 20110827
  Transmission Date: 20111222
  Serious: Yes (Other)
  Sender: FDA-Public Use
  Company Number: FR-JNJFOC-20110902109

PATIENT
  Sex: Female

DRUGS (8)
  1. TRAMADOL HCL [Suspect]
     Indication: PRODUCT USED FOR UNKNOWN INDICATION
     Dosage: 4 DOSAGE FORMS DAILY
     Route: 048
     Dates: start: 20110601
  2. TRAMADOL HCL [Suspect]
     Dosage: 2 DOSAGE FORMS 3  TIMES DAILY AT THE END OF JUNE
     Route: 048
     Dates: start: 20110601
  3. LYRICA [Concomitant]
     Route: 065
  4. ZOLPIDEM [Concomitant]
     Route: 065
  5. MORPHINE [Concomitant]
     Route: 065
  6. PROZAC [Concomitant]
     Route: 065
  7. LEVOCARNIL [Concomitant]
     Route: 065
  8. KETAMINE HCL [Concomitant]
     Route: 065
     Dates: start: 20110601, end: 20110601

REACTIONS (2)
  - HAEMATOCHEZIA [None]
  - DIARRHOEA [None]
